FAERS Safety Report 5121995-7 (Version None)
Quarter: 2006Q4

REPORT INFORMATION
  Report Type: 
  Country: None (occurrence: None)
  Receive Date: 20061006
  Receipt Date: 20060925
  Transmission Date: 20070319
  Serious: Yes (Other)
  Sender: FDA-Public Use
  Company Number: PHEH2006US12245

PATIENT
  Sex: Female

DRUGS (3)
  1. ZOMETA [Suspect]
     Indication: BREAST CANCER METASTATIC
     Dosage: 4 MG MONTHLY
     Dates: start: 20030801, end: 20051101
  2. GEMZAR [Concomitant]
  3. AVASTIN [Concomitant]

REACTIONS (1)
  - OSTEONECROSIS [None]
